FAERS Safety Report 4721466-3 (Version None)
Quarter: 2005Q3

REPORT INFORMATION
  Report Type: 
  Country: None (occurrence: None)
  Receive Date: 20050721
  Receipt Date: 20040924
  Transmission Date: 20060218
  Serious: No
  Sender: FDA-Public Use
  Company Number: US-BRISTOL-MYERS SQUIBB COMPANY-12712147

PATIENT
  Age: 64 Year
  Sex: Female
  Weight: 140 kg

DRUGS (6)
  1. COUMADIN [Suspect]
     Indication: PULMONARY THROMBOSIS
     Dosage: LAST DOSE 21-SEP-2004; RX HELD ON 22ND + 23RD-SEP-2004 + THEN RESTART ON 24-SEP-2004
     Route: 048
     Dates: start: 20040904
  2. CALAN [Concomitant]
  3. ZOLOFT [Concomitant]
  4. KLONOPIN [Concomitant]
  5. NEURONTIN [Concomitant]
  6. EXTRA STRENGTH TYLENOL [Concomitant]

REACTIONS (2)
  - INTERNATIONAL NORMALISED RATIO INCREASED [None]
  - MUSCULAR WEAKNESS [None]
